FAERS Safety Report 4984551-7 (Version None)
Quarter: 2006Q2

REPORT INFORMATION
  Report Type: 
  Country: None (occurrence: None)
  Receive Date: 20060421
  Receipt Date: 20060407
  Transmission Date: 20061013
  Serious: Yes (Hospitalization)
  Sender: FDA-Public Use
  Company Number: 2006BI000705

PATIENT
  Age: 40 Year
  Sex: Male

DRUGS (8)
  1. ZEVALIN [Suspect]
     Indication: NON-HODGKIN'S LYMPHOMA
     Dosage: 1X; IV
     Route: 042
     Dates: start: 20051110, end: 20051110
  2. RITUXIMAB [Concomitant]
  3. RIUXIMAB [Concomitant]
  4. DEXAMETHASONE [Concomitant]
  5. AMPHO-MORONAL [Concomitant]
  6. MACROGOL [Concomitant]
  7. GLANDOMED [Concomitant]
  8. LAMICTAL [Concomitant]

REACTIONS (5)
  - GANGRENE [None]
  - NECROSIS [None]
  - ONYCHOMADESIS [None]
  - PAIN [None]
  - THROMBOANGIITIS OBLITERANS [None]
